FAERS Safety Report 5259024-7 (Version None)
Quarter: 2007Q1

REPORT INFORMATION
  Report Type: 
  Country: None (occurrence: None)
  Receive Date: 20070308
  Receipt Date: 20070226
  Transmission Date: 20070707
  Serious: Yes (Hospitalization, Other)
  Sender: FDA-Public Use
  Company Number: US-AMGEN-US202745

PATIENT
  Sex: Female

DRUGS (12)
  1. EPOGEN [Suspect]
     Indication: DIALYSIS
     Route: 042
     Dates: start: 20000313
  2. CLONIDINE [Concomitant]
     Route: 048
     Dates: start: 20060320
  3. CREON [Concomitant]
     Route: 048
     Dates: start: 20060320
  4. LASIX [Concomitant]
     Route: 048
     Dates: start: 20060320
  5. METOCLOPRAMIDE [Concomitant]
     Route: 048
     Dates: start: 20060315
  6. BENADRYL [Concomitant]
     Route: 048
  7. VITAMIN CAP [Concomitant]
  8. NORCO [Concomitant]
     Route: 048
  9. VASOTEC [Concomitant]
     Route: 048
  10. FOLIC ACID [Concomitant]
     Route: 048
  11. COLACE [Concomitant]
     Route: 048
  12. PHENERGAN HCL [Concomitant]
     Route: 048

REACTIONS (20)
  - ANAEMIA [None]
  - ANTI-ERYTHROPOIETIN ANTIBODY POSITIVE [None]
  - CELLULITIS [None]
  - COLLAPSE OF LUNG [None]
  - EPISTAXIS [None]
  - GASTRITIS [None]
  - HYPERKALAEMIA [None]
  - MALNUTRITION [None]
  - NEPHRITIS [None]
  - PNEUMONIA [None]
  - PNEUMOTHORAX [None]
  - PSEUDOMONAL BACTERAEMIA [None]
  - SPLENOMEGALY [None]
  - STAPHYLOCOCCAL SEPSIS [None]
  - SYSTEMIC INFLAMMATORY RESPONSE SYNDROME [None]
  - THERAPEUTIC RESPONSE DECREASED [None]
  - THROMBOCYTOPENIA [None]
  - URTICARIA [None]
  - VASCULAR GRAFT COMPLICATION [None]
  - VENA CAVA THROMBOSIS [None]
